FAERS Safety Report 14079221 (Version 1)
Quarter: 2017Q4

REPORT INFORMATION
  Report Type: Spontaneous
  Country: ES (occurrence: ES)
  Receive Date: 20171012
  Receipt Date: 20171012
  Transmission Date: 20180321
  Serious: Yes (Other)
  Sender: FDA-Public Use
  Company Number: ES-009507513-1710ESP003008

PATIENT
  Age: 89 Year
  Sex: Female

DRUGS (7)
  1. LORAZEPAM. [Interacting]
     Active Substance: LORAZEPAM
     Dosage: 0.5 MG, ONCE
     Route: 048
     Dates: start: 20170913, end: 20170913
  2. MOVICOL [Concomitant]
     Active Substance: POLYETHYLENE GLYCOL 3350\POTASSIUM CHLORIDE\SODIUM BICARBONATE\SODIUM CHLORIDE
     Dosage: 2 SACHETS
     Route: 048
     Dates: start: 20170913, end: 20170913
  3. TRAZODONE HYDROCHLORIDE. [Interacting]
     Active Substance: TRAZODONE HYDROCHLORIDE
     Dosage: 100 MG, ONCE
     Route: 048
     Dates: start: 20170913, end: 20170913
  4. SINEMET PLUS 25/100 MG COMPRIMIDOS [Suspect]
     Active Substance: CARBIDOPA\LEVODOPA
     Dosage: 0.5 DF, ONCE
     Route: 048
     Dates: start: 20170913, end: 20170913
  5. ACETAMINOPHEN. [Concomitant]
     Active Substance: ACETAMINOPHEN
     Dosage: 1 G, ONCE
     Route: 048
     Dates: start: 20170913, end: 20170913
  6. RANITIDINE. [Concomitant]
     Active Substance: RANITIDINE
     Dosage: 150 MG, ONCE
     Route: 048
     Dates: start: 20170913, end: 20170913
  7. MIRTAZAPINE. [Interacting]
     Active Substance: MIRTAZAPINE
     Dosage: 45 MG, ONCE
     Route: 048
     Dates: start: 20170913, end: 20170913

REACTIONS (2)
  - Somnolence [Unknown]
  - Drug dispensed to wrong patient [Recovered/Resolved]

NARRATIVE: CASE EVENT DATE: 20170913
